FAERS Safety Report 5875703-2 (Version None)
Quarter: 2008Q3

REPORT INFORMATION
  Report Type: 
  Country: None (occurrence: None)
  Receive Date: 20080905
  Receipt Date: 20080828
  Transmission Date: 20090109
  Serious: Yes (Hospitalization, Other)
  Sender: FDA-Public Use
  Company Number: 2008SP014701

PATIENT
  Age: 48 Year
  Sex: Female
  Weight: 88.4514 kg

DRUGS (2)
  1. PEG-INTRON [Suspect]
     Indication: HEPATITIS C
     Dates: start: 20080519
  2. RIBAVIRIN [Suspect]
     Indication: HEPATITIS C
     Dosage: 1200 MG; QD; PO;  800 MG; QD; PO
     Route: 048
     Dates: start: 20080519

REACTIONS (11)
  - ANAEMIA [None]
  - BILIARY TRACT DISORDER [None]
  - COUGH [None]
  - DECREASED APPETITE [None]
  - DEHYDRATION [None]
  - HEPATIC CIRRHOSIS [None]
  - HYPOTHYROIDISM [None]
  - PORTAL HYPERTENSION [None]
  - RECTAL HAEMORRHAGE [None]
  - VARICES OESOPHAGEAL [None]
  - WEIGHT DECREASED [None]
